FAERS Safety Report 19771265 (Version 2)
Quarter: 2021Q3

REPORT INFORMATION
  Report Type: Spontaneous
  Country: US (occurrence: US)
  Receive Date: 20210831
  Receipt Date: 20210831
  Transmission Date: 20211014
  Serious: No
  Sender: FDA-Public Use
  Company Number: US-LUPIN PHARMACEUTICALS INC.-2021-16060

PATIENT
  Age: 49 Year
  Sex: Male

DRUGS (2)
  1. VANDETANIB. [Concomitant]
     Active Substance: VANDETANIB
     Indication: MEDULLARY THYROID CANCER
     Dosage: UNK
     Route: 048
  2. DOXYCYCLINE. [Suspect]
     Active Substance: DOXYCYCLINE
     Indication: ACNE PUSTULAR
     Dosage: UNK
     Route: 048

REACTIONS (1)
  - Skin hyperpigmentation [Unknown]
